FAERS Safety Report 24394821 (Version 2)
Quarter: 2024Q4

REPORT INFORMATION
  Report Type: Report from Study
  Country: US (occurrence: US)
  Receive Date: 20241004
  Receipt Date: 20241009
  Transmission Date: 20250115
  Serious: Yes (Life-Threatening, Hospitalization, Disabling, Other)
  Sender: AMGEN
  Company Number: US-HORIZON THERAPEUTICS-HZN-2023-000710

PATIENT
  Age: 70 Year
  Sex: Female

DRUGS (5)
  1. TEPEZZA [Suspect]
     Active Substance: TEPROTUMUMAB-TRBW
     Indication: Endocrine ophthalmopathy
     Dosage: UNK, Q6WK
     Route: 042
     Dates: start: 20230124
  2. TEPEZZA [Suspect]
     Active Substance: TEPROTUMUMAB-TRBW
     Indication: Graves^ disease
     Dosage: UNK, Q6WK 6TH INFUSION
     Route: 042
     Dates: start: 20230509
  3. TEPEZZA [Suspect]
     Active Substance: TEPROTUMUMAB-TRBW
     Dosage: UNK, Q6WK LAST INFUSION
     Route: 042
     Dates: end: 202305
  4. BOTOX [Concomitant]
     Active Substance: ONABOTULINUMTOXINA
     Dosage: UNK
     Route: 065
  5. IRON [Concomitant]
     Active Substance: IRON
     Dosage: UNK
     Route: 065

REACTIONS (42)
  - Loss of consciousness [Recovering/Resolving]
  - Blood glucose increased [Not Recovered/Not Resolved]
  - Nausea [Unknown]
  - Renal failure [Unknown]
  - Cerebrovascular accident [Unknown]
  - Seizure [Unknown]
  - Cystitis [Unknown]
  - Dehydration [Unknown]
  - Irritable bowel syndrome [Unknown]
  - Diabetes mellitus [Recovering/Resolving]
  - Fibromyalgia [Unknown]
  - Chills [Unknown]
  - Dysphonia [Unknown]
  - Malaise [Unknown]
  - Dizziness [Unknown]
  - Contusion [Not Recovered/Not Resolved]
  - Gastrooesophageal reflux disease [Unknown]
  - Hypophagia [Unknown]
  - Blood pressure increased [Recovering/Resolving]
  - Abdominal discomfort [Unknown]
  - Asthenia [Unknown]
  - Diarrhoea [Unknown]
  - Headache [Unknown]
  - Weight decreased [Unknown]
  - Fatigue [Unknown]
  - Dry skin [Unknown]
  - Eye injury [Unknown]
  - Fall [Unknown]
  - Vascular access complication [Unknown]
  - Back pain [Unknown]
  - Decreased appetite [Not Recovered/Not Resolved]
  - Balance disorder [Unknown]
  - Nail disorder [Recovering/Resolving]
  - Skin exfoliation [Recovering/Resolving]
  - Alopecia [Recovering/Resolving]
  - Hypoacusis [Recovering/Resolving]
  - Amnesia [Recovering/Resolving]
  - Arthritis [Recovering/Resolving]
  - Blood magnesium decreased [Recovering/Resolving]
  - Blood potassium decreased [Recovering/Resolving]
  - Off label use [Unknown]
  - Hypertension [Recovering/Resolving]

NARRATIVE: CASE EVENT DATE: 20230101
